FAERS Safety Report 10808963 (Version 1)
Quarter: 2015Q1

REPORT INFORMATION
  Report Type: Report from Study
  Country: US (occurrence: US)
  Receive Date: 20150217
  Receipt Date: 20150217
  Transmission Date: 20150721
  Serious: No
  Sender: FDA-Public Use
  Company Number: US-ABBVIE-14K-163-1214585-00

PATIENT
  Age: 64 Year
  Sex: Female

DRUGS (24)
  1. HUMIRA [Suspect]
     Active Substance: ADALIMUMAB
  2. PROLIA [Concomitant]
     Active Substance: DENOSUMAB
     Indication: OSTEOPOROSIS
  3. DILTIAZEM [Concomitant]
     Active Substance: DILTIAZEM
     Indication: MIGRAINE
  4. PROBIOTICS NOS [Concomitant]
     Active Substance: PROBIOTICS NOS
     Indication: SUPPLEMENTATION THERAPY
  5. CENTRUM SILVER [Concomitant]
     Active Substance: VITAMINS
     Indication: SUPPLEMENTATION THERAPY
     Dosage: FOR WOMEN ONE IN AS
  6. ALEVE [Concomitant]
     Active Substance: NAPROXEN SODIUM
     Indication: SCIATICA
  7. ZZZQUIL NIGHTTIME SLEEP-AID [Concomitant]
     Active Substance: DIPHENHYDRAMINE HYDROCHLORIDE
     Indication: INSOMNIA
     Dosage: NIGHT
  8. CALCIUM [Concomitant]
     Active Substance: CALCIUM
     Indication: MINERAL SUPPLEMENTATION
  9. ENTOCORT [Concomitant]
     Active Substance: BUDESONIDE
     Indication: CROHN^S DISEASE
     Dosage: IN MORNING
  10. CITRUS SPP. [Concomitant]
     Indication: SUPPLEMENTATION THERAPY
     Dosage: ONE IN MORNING ONE IN EVENING
  11. MAGNESIUM W/ZINC [Concomitant]
     Indication: SUPPLEMENTATION THERAPY
  12. BENADRYL [Concomitant]
     Active Substance: DIPHENHYDRAMINE HYDROCHLORIDE
     Indication: HYPERSENSITIVITY
  13. DIPHENHYDRAMINE HCL [Concomitant]
     Active Substance: DIPHENHYDRAMINE HYDROCHLORIDE
     Indication: INSOMNIA
     Dosage: NIGHT
  14. ROSE HIPS [Concomitant]
     Indication: SUPPLEMENTATION THERAPY
     Dosage: ONE IN MORNING ONE IN EVENING
  15. ASACOL [Concomitant]
     Active Substance: MESALAMINE
     Indication: CROHN^S DISEASE
     Dosage: THREE IN MORNING AND THREE IN EVENING
  16. MACROBID [Concomitant]
     Active Substance: NITROFURANTOIN\NITROFURANTOIN MONOHYDRATE
     Indication: CYSTITIS
  17. VITAMIN D3 [Concomitant]
     Active Substance: CHOLECALCIFEROL
     Indication: VITAMIN SUPPLEMENTATION
  18. HUMIRA [Suspect]
     Active Substance: ADALIMUMAB
     Indication: CROHN^S DISEASE
     Dosage: LOADING DOSE
     Dates: start: 20140311, end: 20140311
  19. RIBOFLAVIN [Concomitant]
     Active Substance: RIBOFLAVIN
     Indication: VITAMIN SUPPLEMENTATION
  20. DHEA [Concomitant]
     Active Substance: DEHYDROEPIANDROSTERONE-3-SULFATE SODIUM
     Indication: SUPPLEMENTATION THERAPY
     Dosage: 25 MG TWO IN AS
  21. VITAMIN C [Concomitant]
     Active Substance: ASCORBIC ACID
     Indication: VITAMIN SUPPLEMENTATION
     Dosage: ONE IN MORNING ONE IN EVENING
  22. RANITIDINE [Concomitant]
     Active Substance: RANITIDINE\RANITIDINE HYDROCHLORIDE
     Indication: GASTROOESOPHAGEAL REFLUX DISEASE
     Dosage: TWO OR THREE A DAY
  23. MACROBID [Concomitant]
     Active Substance: NITROFURANTOIN\NITROFURANTOIN MONOHYDRATE
     Indication: PROPHYLAXIS
  24. IRON [Concomitant]
     Active Substance: IRON
     Indication: MINERAL SUPPLEMENTATION

REACTIONS (2)
  - Muscle spasms [Recovered/Resolved]
  - Middle insomnia [Recovered/Resolved]

NARRATIVE: CASE EVENT DATE: 20140313
